FAERS Safety Report 23741761 (Version 1)
Quarter: 2024Q2

REPORT INFORMATION
  Report Type: Spontaneous
  Country: US (occurrence: US)
  Receive Date: 20240415
  Receipt Date: 20240415
  Transmission Date: 20240716
  Serious: Yes (Other)
  Sender: FDA-Public Use
  Company Number: US-SA-SAC20240412000047

PATIENT
  Age: 79 Year
  Sex: Female

DRUGS (1)
  1. DUPIXENT [Suspect]
     Active Substance: DUPILUMAB
     Dosage: 300 MG, QOW
     Route: 058
     Dates: start: 202309

REACTIONS (10)
  - Diabetes mellitus [Unknown]
  - Pain [Unknown]
  - Diarrhoea [Unknown]
  - Dry skin [Unknown]
  - Skin fissures [Unknown]
  - Fatigue [Unknown]
  - Pruritus [Unknown]
  - Dry eye [Unknown]
  - Injection site pain [Unknown]
  - Therapeutic response decreased [Unknown]
